FAERS Safety Report 5327278-4 (Version None)
Quarter: 2007Q2

REPORT INFORMATION
  Report Type: 
  Country: None (occurrence: None)
  Receive Date: 20070517
  Receipt Date: 20070507
  Transmission Date: 20071010
  Serious: Yes (Hospitalization)
  Sender: FDA-Public Use
  Company Number: JP-ROCHE-496863

PATIENT
  Age: 6 Year
  Sex: Male

DRUGS (1)
  1. ROCEPHIN [Suspect]
     Indication: UPPER RESPIRATORY TRACT INFLAMMATION
     Route: 041
     Dates: start: 20070427, end: 20070427

REACTIONS (1)
  - BLISTER [None]
